FAERS Safety Report 23749829 (Version 4)
Quarter: 2024Q2

REPORT INFORMATION
  Report Type: Report from Study
  Country: NL (occurrence: NL)
  Receive Date: 20240417
  Receipt Date: 20240430
  Transmission Date: 20240716
  Serious: Yes (Other)
  Sender: FDA-Public Use
  Company Number: NL-ABBVIE-5717696

PATIENT
  Sex: Male

DRUGS (6)
  1. CARBIDOPA\LEVODOPA [Suspect]
     Active Substance: CARBIDOPA\LEVODOPA
     Indication: Parkinson^s disease
     Dosage: MD: 11.0 ML, CD: 2.7 ML/H, ED: 1.0 ML?DURATION TEXT: REMAINS AT 16 HOURS
     Route: 050
     Dates: start: 20240408, end: 20240409
  2. CARBIDOPA\LEVODOPA [Suspect]
     Active Substance: CARBIDOPA\LEVODOPA
     Dosage: MD: 11.0 ML, CD: 2.5 ML/H, ED: 1.0 ML?DURATION TEXT: REMAINS AT 16 HOURS?DOSE DECREASED
     Route: 050
     Dates: start: 20240416
  3. CARBIDOPA\LEVODOPA [Suspect]
     Active Substance: CARBIDOPA\LEVODOPA
     Dosage: LAST ADMIN DATE 2024
     Route: 050
     Dates: start: 20240226
  4. CARBIDOPA\LEVODOPA [Suspect]
     Active Substance: CARBIDOPA\LEVODOPA
     Dosage: MD: 11.0 ML, CD: 2.7 ML/H, ED: 1.0 ML?DURATION TEXT: REMAINS AT 16 HOURS
     Route: 050
     Dates: start: 20240409, end: 20240416
  5. POLYETHYLENE GLYCOLS [Concomitant]
     Active Substance: POLYETHYLENE GLYCOLS
     Indication: Abnormal faeces
  6. Microlax [Concomitant]
     Indication: Abnormal faeces

REACTIONS (19)
  - Cerebrovascular accident [Not Recovered/Not Resolved]
  - Auditory disorder [Unknown]
  - Agitation [Not Recovered/Not Resolved]
  - Altered state of consciousness [Unknown]
  - Restless arm syndrome [Not Recovered/Not Resolved]
  - Memory impairment [Unknown]
  - Speech disorder [Not Recovered/Not Resolved]
  - Communication disorder [Not Recovered/Not Resolved]
  - On and off phenomenon [Not Recovered/Not Resolved]
  - Dyskinesia [Not Recovered/Not Resolved]
  - Gait disturbance [Not Recovered/Not Resolved]
  - Tension [Not Recovered/Not Resolved]
  - Brain injury [Not Recovered/Not Resolved]
  - Stoma site inflammation [Not Recovered/Not Resolved]
  - Unevaluable event [Recovered/Resolved]
  - Unevaluable event [Not Recovered/Not Resolved]
  - Daydreaming [Not Recovered/Not Resolved]
  - Disturbance in attention [Unknown]
  - Cognitive disorder [Not Recovered/Not Resolved]

NARRATIVE: CASE EVENT DATE: 20240101
